FAERS Safety Report 20732264 (Version 2)
Quarter: 2022Q2

REPORT INFORMATION
  Report Type: Spontaneous
  Country: US (occurrence: US)
  Receive Date: 20220420
  Receipt Date: 20220520
  Transmission Date: 20220721
  Serious: No
  Sender: FDA-Public Use
  Company Number: US-PFIZER INC-202101567090

PATIENT
  Age: 68 Year
  Sex: Female
  Weight: 50.8 kg

DRUGS (2)
  1. CELEBREX [Suspect]
     Active Substance: CELECOXIB
     Indication: Osteoarthritis
     Dosage: 200 MG, 2X/DAY (ONE PILL, 200 MG, AND THEN 12 HOURS LATER SHE TAKES ANOTHER PILL OF 200 MG)
  2. CELEBREX [Suspect]
     Active Substance: CELECOXIB
     Indication: Scoliosis

REACTIONS (3)
  - Off label use [Unknown]
  - Pain [Recovering/Resolving]
  - Condition aggravated [Unknown]
